FAERS Safety Report 7149079-7 (Version None)
Quarter: 2010Q4

REPORT INFORMATION
  Report Type: 
  Country: None (occurrence: None)
  Receive Date: 20101209
  Receipt Date: 20101202
  Transmission Date: 20110411
  Serious: Yes (Hospitalization)
  Sender: FDA-Public Use
  Company Number: FR-BRISTOL-MYERS SQUIBB COMPANY-15421407

PATIENT
  Age: 40 Year
  Sex: Female

DRUGS (3)
  1. TAXOL [Suspect]
     Indication: BREAST CANCER
     Route: 042
     Dates: start: 20101007, end: 20101014
  2. TAXOTERE [Suspect]
     Indication: BREAST CANCER
     Dosage: ALSO ON 15SEP2010
     Route: 042
     Dates: start: 20100826
  3. HERCEPTIN [Suspect]
     Indication: BREAST CANCER
     Route: 042
     Dates: start: 20100825, end: 20101014

REACTIONS (1)
  - HEPATIC FIBROSIS [None]
